FAERS Safety Report 23280623 (Version 2)
Quarter: 2023Q4

REPORT INFORMATION
  Report Type: Spontaneous
  Country: JP (occurrence: JP)
  Receive Date: 20231211
  Receipt Date: 20231226
  Transmission Date: 20240110
  Serious: Yes (Hospitalization, Other)
  Sender: FDA-Public Use
  Company Number: JP-VIIV HEALTHCARE LIMITED-JP2023JPN169767

PATIENT

DRUGS (5)
  1. TIVICAY [Suspect]
     Active Substance: DOLUTEGRAVIR SODIUM
     Indication: HIV infection
     Dosage: UNK
  2. TIVICAY [Suspect]
     Active Substance: DOLUTEGRAVIR SODIUM
     Dosage: 50 MG, 1D
  3. DESCOVY [Concomitant]
     Active Substance: EMTRICITABINE\TENOFOVIR ALAFENAMIDE FUMARATE
     Indication: HIV infection
     Dosage: UNK
  4. DESCOVY [Concomitant]
     Active Substance: EMTRICITABINE\TENOFOVIR ALAFENAMIDE FUMARATE
     Dosage: 1 DF, 1D
  5. URSODIOL [Concomitant]
     Active Substance: URSODIOL
     Dosage: UNK

REACTIONS (11)
  - Blood HIV RNA increased [Recovered/Resolved]
  - Acquired immunodeficiency syndrome [Unknown]
  - Pneumocystis jirovecii pneumonia [Unknown]
  - Hepatitis alcoholic [Unknown]
  - Anaemia macrocytic [Recovered/Resolved]
  - Stomatitis [Unknown]
  - Skin erosion [Recovered/Resolved]
  - Mucocutaneous disorder [Recovered/Resolved]
  - Taste disorder [Unknown]
  - Therapy cessation [Unknown]
  - Drug interaction [Unknown]
